FAERS Safety Report 19212560 (Version 4)
Quarter: 2021Q2

REPORT INFORMATION
  Report Type: Spontaneous
  Country: RS (occurrence: RS)
  Receive Date: 20210504
  Receipt Date: 20210614
  Transmission Date: 20210717
  Serious: Yes (Hospitalization)
  Sender: FDA-Public Use
  Company Number: RS-EMD SERONO-9234886

PATIENT
  Age: 47 Year
  Sex: Male

DRUGS (5)
  1. KLOMETOL [Concomitant]
     Indication: NAUSEA
  2. KSALOL [Concomitant]
     Active Substance: ALPRAZOLAM
     Indication: PRODUCT USED FOR UNKNOWN INDICATION
     Dosage: O.5 MG IN MORNING AND NIGHT
  3. DIKLOFEN [Concomitant]
     Active Substance: DICLOFENAC
     Indication: PAIN IN EXTREMITY
  4. MAVENCLAD [Suspect]
     Active Substance: CLADRIBINE
     Dosage: SECOND MONTH THERAPY
     Dates: start: 202008
  5. MAVENCLAD [Suspect]
     Active Substance: CLADRIBINE
     Indication: MULTIPLE SCLEROSIS
     Dosage: FIRST MONTH THERAPY
     Dates: start: 20200720

REACTIONS (5)
  - Cardiomyopathy [Not Recovered/Not Resolved]
  - COVID-19 [Unknown]
  - Pleural effusion [Unknown]
  - Atrial fibrillation [Not Recovered/Not Resolved]
  - Exposure to SARS-CoV-2 [Unknown]

NARRATIVE: CASE EVENT DATE: 2021
